FAERS Safety Report 7554485-2 (Version None)
Quarter: 2011Q2

REPORT INFORMATION
  Report Type: 
  Country: None (occurrence: None)
  Receive Date: 20110617
  Receipt Date: 20070907
  Transmission Date: 20111010
  Serious: Yes (Other)
  Sender: FDA-Public Use
  Company Number: B0656007A

PATIENT
  Sex: Male
  Weight: 49.7 kg

DRUGS (7)
  1. ABACAVIR SULFATE/LAMIVUDINE [Concomitant]
     Route: 048
     Dates: start: 20051026
  2. VIDEX [Concomitant]
     Route: 048
     Dates: start: 20051026
  3. MARAVIROC [Suspect]
     Dosage: 300MG TWICE PER DAY
     Route: 048
     Dates: start: 20071126
  4. NORVIR [Concomitant]
     Route: 048
     Dates: start: 20031030
  5. TIPRANAVIR [Concomitant]
     Route: 048
     Dates: start: 20051026
  6. MARAVIROC [Suspect]
     Indication: HIV INFECTION
     Dosage: 300MG TWICE PER DAY
     Route: 048
     Dates: start: 20051028, end: 20071015
  7. SUSTIVA [Concomitant]
     Route: 048
     Dates: start: 20051026

REACTIONS (1)
  - HODGKIN'S DISEASE [None]
